FAERS Safety Report 6537655-1 (Version None)
Quarter: 2010Q1

REPORT INFORMATION
  Report Type: 
  Country: None (occurrence: None)
  Receive Date: 20100114
  Receipt Date: 20100104
  Transmission Date: 20100710
  Serious: Yes (Hospitalization)
  Sender: FDA-Public Use
  Company Number: B0623382A

PATIENT
  Age: 53 Year
  Sex: Female

DRUGS (1)
  1. ARIXTRA [Suspect]
     Indication: PROTEIN C DEFICIENCY
     Dosage: 5MG PER DAY
     Route: 058
     Dates: start: 20091005, end: 20091006

REACTIONS (5)
  - APHASIA [None]
  - LOSS OF CONSCIOUSNESS [None]
  - MALAISE [None]
  - MOVEMENT DISORDER [None]
  - OFF LABEL USE [None]
